FAERS Safety Report 20675934 (Version 1)
Quarter: 2022Q2

REPORT INFORMATION
  Report Type: Spontaneous
  Country: US (occurrence: US)
  Receive Date: 20220405
  Receipt Date: 20220405
  Transmission Date: 20220721
  Serious: Yes (Other)
  Sender: FDA-Public Use
  Company Number: US-009507513-2204USA000320

PATIENT
  Sex: Male

DRUGS (15)
  1. KEYTRUDA [Suspect]
     Active Substance: PEMBROLIZUMAB
  2. LENVATINIB MESYLATE [Suspect]
     Active Substance: LENVATINIB MESYLATE
  3. INLYTA [Suspect]
     Active Substance: AXITINIB
     Dosage: UNK
  4. CHEWABLE IRON [Concomitant]
  5. CALCIUM CARBONATE [Concomitant]
     Active Substance: CALCIUM CARBONATE
  6. FISH OIL [Concomitant]
     Active Substance: FISH OIL
  7. TYLENOL [Concomitant]
     Active Substance: ACETAMINOPHEN
  8. TYLENOL PM, EXTRA STRENGTH [Concomitant]
  9. VITAMIN B12 [Concomitant]
     Active Substance: CYANOCOBALAMIN
  10. VITAMIN C [Concomitant]
     Active Substance: ASCORBIC ACID
  11. PROCHLORPERAZINE MALEATE [Concomitant]
     Active Substance: PROCHLORPERAZINE MALEATE
  12. SYNTHROID [Concomitant]
     Active Substance: LEVOTHYROXINE SODIUM
  13. DILTIAZEM [Concomitant]
     Active Substance: DILTIAZEM
  14. ELIQUIS [Concomitant]
     Active Substance: APIXABAN
  15. BOOSTRIX [Concomitant]
     Active Substance: TETANUS TOXOID, REDUCED DIPHTHERIA TOXOID AND ACELLULAR PERTUSSIS VACCINE, ADSORBED ANTIGENS

REACTIONS (5)
  - Hypothyroidism [Unknown]
  - Asthenia [Unknown]
  - Fatigue [Unknown]
  - Eating disorder [Unknown]
  - Renal pain [Unknown]
